FAERS Safety Report 7273843-7 (Version None)
Quarter: 2011Q1

REPORT INFORMATION
  Report Type: 
  Country: None (occurrence: None)
  Receive Date: 20110203
  Receipt Date: 20110121
  Transmission Date: 20110831
  Serious: Yes (Hospitalization, Other)
  Sender: FDA-Public Use
  Company Number: US-ELI_LILLY_AND_COMPANY-US201004002927

PATIENT
  Sex: Female

DRUGS (20)
  1. SPIRIVA [Concomitant]
  2. ALBUTEROL [Concomitant]
  3. OXYGEN [Concomitant]
  4. FORTEO [Suspect]
     Indication: OSTEOPOROSIS
     Dosage: 20 UG, DAILY (1/D)
     Route: 065
     Dates: start: 20100401
  5. FUROSEMIDE [Concomitant]
  6. MUCINEX [Concomitant]
  7. FORTEO [Suspect]
     Dosage: 20 UG, DAILY (1/D)
  8. ZYFLO [Concomitant]
     Dosage: 600 MG, UNKNOWN
  9. PREDNISONE [Concomitant]
  10. PANTOPRAZOLO [Concomitant]
  11. BISOPROLOL FUMARATE [Concomitant]
  12. FORTEO [Suspect]
     Dosage: 20 UG, DAILY (1/D)
  13. SUCRALFATE [Concomitant]
  14. KLOR-CON [Concomitant]
  15. ROPINIROLE [Concomitant]
  16. QVAR 40 [Concomitant]
  17. FERROUS                            /00023505/ [Concomitant]
  18. METFORMIN [Concomitant]
  19. ADVAIR [Concomitant]
  20. PROVENTIL /00139501/ [Concomitant]

REACTIONS (7)
  - PNEUMONIA [None]
  - NAUSEA [None]
  - FEELING ABNORMAL [None]
  - TOTAL LUNG CAPACITY DECREASED [None]
  - DIARRHOEA [None]
  - DYSPNOEA [None]
  - MUSCLE SPASMS [None]
